FAERS Safety Report 12846606 (Version 1)
Quarter: 2016Q4

REPORT INFORMATION
  Report Type: Spontaneous
  Country: US (occurrence: US)
  Receive Date: 20161014
  Receipt Date: 20161014
  Transmission Date: 20170207
  Serious: Yes (Other)
  Sender: FDA-Public Use
  Company Number: US-EMD SERONO-8111865

PATIENT
  Age: 39 Year
  Sex: Female

DRUGS (1)
  1. REBIF [Suspect]
     Active Substance: INTERFERON BETA-1A
     Indication: PRODUCT USED FOR UNKNOWN INDICATION

REACTIONS (7)
  - Seizure [Unknown]
  - Urinary incontinence [Unknown]
  - Drug intolerance [Unknown]
  - Visual impairment [Unknown]
  - Fatigue [Unknown]
  - Confusional state [Unknown]
  - Loss of consciousness [Unknown]
